FAERS Safety Report 16745455 (Version 1)
Quarter: 2019Q3

REPORT INFORMATION
  Report Type: Report from Study
  Country: IT (occurrence: IT)
  Receive Date: 20190827
  Receipt Date: 20190827
  Transmission Date: 20191005
  Serious: Yes (Hospitalization)
  Sender: FDA-Public Use
  Company Number: IT-TEVA-2019-IT-1098539

PATIENT
  Age: 53 Year
  Sex: Male

DRUGS (1)
  1. ZOLPIDEM [Suspect]
     Active Substance: ZOLPIDEM TARTRATE
     Dosage: MEAN DAILY DOSE OF 1000MG (DIAZEPAM-EQUIVALENT DOSE: 500MG)
     Route: 065

REACTIONS (5)
  - Drug dependence [Unknown]
  - Intentional overdose [Unknown]
  - Drug abuse [Unknown]
  - Alanine aminotransferase increased [Unknown]
  - Gamma-glutamyltransferase increased [Unknown]
